FAERS Safety Report 7367181-1 (Version None)
Quarter: 2011Q1

REPORT INFORMATION
  Report Type: 
  Country: None (occurrence: None)
  Receive Date: 20110322
  Receipt Date: 20110310
  Transmission Date: 20110831
  Serious: Yes (Other)
  Sender: FDA-Public Use
  Company Number: US-JNJFOC-20110306692

PATIENT
  Age: 49 Year
  Sex: Male
  Weight: 107.96 kg

DRUGS (3)
  1. PEPCID COMPLETE [Suspect]
     Route: 048
  2. PEPCID COMPLETE [Suspect]
     Indication: DYSPEPSIA
     Route: 048
  3. EXCEDRIN NOS [Concomitant]
     Indication: HEADACHE

REACTIONS (4)
  - VOMITING [None]
  - PRODUCT QUALITY ISSUE [None]
  - HAEMATOCHEZIA [None]
  - ABDOMINAL PAIN [None]
